FAERS Safety Report 6147432-1 (Version None)
Quarter: 2009Q2

REPORT INFORMATION
  Report Type: 
  Country: None (occurrence: None)
  Receive Date: 20090408
  Receipt Date: 20090330
  Transmission Date: 20091009
  Serious: Yes (Hospitalization)
  Sender: FDA-Public Use
  Company Number: ES-WYE-H08800909

PATIENT
  Age: 80 Year
  Sex: Male

DRUGS (6)
  1. TRANGOREX [Suspect]
     Indication: ATRIAL FIBRILLATION
     Route: 048
     Dates: start: 20000101
  2. SUTRIL [Concomitant]
     Indication: HYPERTENSIVE NEPHROPATHY
     Route: 048
     Dates: start: 20000101
  3. ACETYLSALICYLIC ACID [Concomitant]
     Indication: CARDIOVASCULAR EVENT PROPHYLAXIS
     Route: 048
     Dates: start: 20000101
  4. NORVASC [Concomitant]
     Indication: HYPERTENSIVE NEPHROPATHY
     Route: 048
     Dates: start: 20000101
  5. ENALAPRIL [Interacting]
     Indication: HYPERTENSIVE NEPHROPATHY
     Route: 048
     Dates: start: 20000101
  6. ISOSORBIDE MONONITRATE [Interacting]
     Indication: HYPERTENSIVE NEPHROPATHY
     Route: 048
     Dates: start: 20000101

REACTIONS (4)
  - ATRIOVENTRICULAR BLOCK COMPLETE [None]
  - BLOOD SODIUM INCREASED [None]
  - BLOOD UREA INCREASED [None]
  - DRUG INTERACTION [None]
